FAERS Safety Report 4953490-X (Version None)
Quarter: 2006Q1

REPORT INFORMATION
  Report Type: 
  Country: None (occurrence: None)
  Receive Date: 20060127
  Receipt Date: 20050928
  Transmission Date: 20060701
  Serious: Yes (Death)
  Sender: FDA-Public Use
  Company Number: 2005-US-00533

PATIENT
  Age: 91 Year
  Sex: Female

DRUGS (1)
  1. CLOZAPINE [Suspect]
     Indication: SCHIZOPHRENIA
     Dosage: 50 MG, QD, ORAL
     Route: 048
     Dates: start: 20050901, end: 20050901

REACTIONS (1)
  - PRE-EXISTING DISEASE [None]
